FAERS Safety Report 8970115 (Version 1)
Quarter: 2012Q4

REPORT INFORMATION
  Report Type: 
  Country: CN (occurrence: CN)
  Receive Date: 20121217
  Receipt Date: 20121217
  Transmission Date: 20130627
  Serious: Yes (Other)
  Sender: FDA-Public Use
  Company Number: PHHY2012CN114113

PATIENT
  Sex: Male

DRUGS (3)
  1. SEBIVO [Suspect]
     Indication: CHRONIC HEPATITIS B
     Dosage: 600 mg, QD
     Route: 048
     Dates: start: 20070901, end: 20080531
  2. INTERFERON [Concomitant]
     Dosage: 5000000 U, once every 2 days
  3. LAMIVUDINE [Concomitant]
     Dosage: 100 mg, QD

REACTIONS (1)
  - Nerve root injury [Recovered/Resolved]
